FAERS Safety Report 21133855 (Version 3)
Quarter: 2022Q3

REPORT INFORMATION
  Report Type: Other
  Country: ES (occurrence: ES)
  Receive Date: 20220726
  Receipt Date: 20220905
  Transmission Date: 20221027
  Serious: Yes (Life-Threatening, Hospitalization)
  Sender: FDA-Public Use
  Company Number: ES-CELLTRION HEALTHCARE HUNGARY KFT-2022ES010578

PATIENT
  Age: 82 Year
  Sex: Female
  Weight: 48 kg

DRUGS (19)
  1. LENALIDOMIDE [Suspect]
     Active Substance: LENALIDOMIDE
     Indication: Marginal zone lymphoma
     Dosage: 20 MILLIGRAM, QD ON DAYS 1 TO 21 OF EVERY CYCLE AT APPROXIMATELY Y THE SAME TIME EVERY DAY FOR 12 CY
     Route: 065
     Dates: start: 20220614
  2. LENALIDOMIDE [Suspect]
     Active Substance: LENALIDOMIDE
     Dosage: 20 MILLIGRAM, QD ON DAYS 1 TO 21 OF EVERY CYCLE AT APPROXIMATELY Y THE SAME TIME EVERY DAY FOR 12 CY
     Route: 065
     Dates: start: 20220620, end: 20220621
  3. TAFASITAMAB-CXIX [Suspect]
     Active Substance: TAFASITAMAB-CXIX
     Indication: Marginal zone lymphoma
     Dosage: INCMOR00208 (TAFASITAMAB)/ PLACEBO AT 12 MG/KG (576 MG) ON DAYS 1, 8, 15 AND 22 OF CYCLES 1 TO 3 AND
     Route: 065
     Dates: start: 20220614
  4. RITUXIMAB [Suspect]
     Active Substance: RITUXIMAB
     Indication: Marginal zone lymphoma
     Dosage: 375 MILLIGRAM/SQ. METER (558.75 MG), ON DAYS 1, 8, 15 AND 22 OF CYCLE 1 AND ON DAY 1 OF CYCLES 2 TO
     Route: 041
     Dates: start: 20220614
  5. SULFAMETHOXAZOLE [Concomitant]
     Active Substance: SULFAMETHOXAZOLE
     Dosage: UNK
     Dates: start: 20220614
  6. ASPIRIN [Concomitant]
     Active Substance: ASPIRIN
     Dosage: UNK
     Dates: start: 20220614
  7. FOLIC ACID [Concomitant]
     Active Substance: FOLIC ACID
     Dosage: UNK
     Dates: start: 20121227
  8. CALCIFEDIOL [Concomitant]
     Active Substance: CALCIFEDIOL
     Dosage: UNK
     Dates: start: 20180919
  9. LERCANIDIPINE [Concomitant]
     Active Substance: LERCANIDIPINE
     Dosage: UNK
     Dates: start: 20120511, end: 20220625
  10. ENALAPRIL [Concomitant]
     Active Substance: ENALAPRIL
     Dosage: UNK
     Dates: start: 20120511
  11. ACYCLOVIR [Concomitant]
     Active Substance: ACYCLOVIR
     Dosage: UNK
     Dates: start: 20220614, end: 20220621
  12. PREDNISONE [Concomitant]
     Active Substance: PREDNISONE
     Dosage: UNK
     Dates: start: 20220621
  13. TRIMETHOPRIM [Concomitant]
     Active Substance: TRIMETHOPRIM
     Dosage: UNK
     Dates: start: 20220614, end: 20220621
  14. OMEPRAZOLE [Concomitant]
     Active Substance: OMEPRAZOLE
     Dosage: UNK
     Dates: start: 20220614
  15. CLARAL [Concomitant]
     Dosage: UNK
     Dates: start: 20220621
  16. LAMOTRIGINE [Concomitant]
     Active Substance: LAMOTRIGINE
     Dosage: UNK
     Dates: start: 20120511, end: 20220625
  17. ZOLEDRONIC ACID [Concomitant]
     Active Substance: ZOLEDRONIC ACID
     Dosage: UNK
     Dates: start: 20220614
  18. CALCIUM CARBONATE\CHOLECALCIFEROL [Concomitant]
     Active Substance: CALCIUM CARBONATE\CHOLECALCIFEROL
     Dosage: UNK
     Dates: start: 20120709
  19. POLARAMINE [Concomitant]
     Active Substance: DEXCHLORPHENIRAMINE MALEATE
     Dosage: UNK
     Dates: start: 20220621

REACTIONS (7)
  - Thrombocytopenia [Unknown]
  - Acute kidney injury [Recovered/Resolved]
  - Hyperkalaemia [Unknown]
  - Hyponatraemia [Unknown]
  - General physical health deterioration [Recovered/Resolved]
  - COVID-19 [Recovering/Resolving]
  - Off label use [Unknown]

NARRATIVE: CASE EVENT DATE: 20220623
